FAERS Safety Report 5724798-5 (Version None)
Quarter: 2008Q2

REPORT INFORMATION
  Report Type: 
  Country: None (occurrence: None)
  Receive Date: 20080501
  Receipt Date: 20080417
  Transmission Date: 20081010
  Serious: Yes (Hospitalization)
  Sender: FDA-Public Use
  Company Number: US-AMGEN-US270432

PATIENT
  Sex: Male

DRUGS (7)
  1. ENBREL [Suspect]
     Indication: PSORIASIS
     Route: 058
     Dates: start: 20060926, end: 20070220
  2. AMARYL [Concomitant]
     Route: 065
  3. ACIPHEX [Concomitant]
     Route: 065
  4. ALDACTONE [Concomitant]
     Route: 065
  5. LANTUS [Concomitant]
     Route: 058
  6. CYCLOSPORINE [Concomitant]
     Route: 048
  7. NADOLOL [Concomitant]
     Route: 048

REACTIONS (1)
  - HEPATIC ENCEPHALOPATHY [None]
